FAERS Safety Report 7539543-0 (Version None)
Quarter: 2011Q2

REPORT INFORMATION
  Report Type: 
  Country: None (occurrence: None)
  Receive Date: 20110610
  Receipt Date: 20110530
  Transmission Date: 20111010
  Serious: Yes (Other)
  Sender: FDA-Public Use
  Company Number: JP-ELI_LILLY_AND_COMPANY-JP201105005319

PATIENT
  Sex: Female
  Weight: 57.1 kg

DRUGS (14)
  1. OLMESARTAN MEDOXOMIL [Concomitant]
     Dosage: 10 MG, QD
     Route: 048
  2. ORCL [Concomitant]
     Dosage: 100 MG, BID
     Route: 048
     Dates: start: 19950101
  3. RHEUMATREX [Concomitant]
     Dosage: 2 MG, WEEKLY (1/W) ON WEDNESDAY
     Route: 048
     Dates: start: 19950101
  4. ADALAT CR                               /SCH/ [Concomitant]
     Dosage: 20 MG, EACH EVENING
     Route: 048
  5. BREDININ [Concomitant]
     Dosage: 50 MG, QD
     Route: 048
     Dates: start: 19950101
  6. METHYCOBAL [Concomitant]
     Dosage: 500 UG, BID
     Route: 048
     Dates: start: 19950101
  7. ADALAT CR                               /SCH/ [Concomitant]
     Dosage: 10 MG, EACH MORNING
     Route: 048
  8. FOLIC ACID [Concomitant]
     Dosage: 1 DF, WEEKLY (1/W) ON FRIDAY
     Route: 048
     Dates: start: 19950101
  9. FERROUS CITRATE [Concomitant]
     Dosage: 100 MG, QD
     Route: 048
     Dates: start: 19950101
  10. ACINON [Concomitant]
     Dosage: 150 MG, QD
     Route: 048
  11. FORTEO [Suspect]
     Indication: OSTEOPOROSIS
     Dosage: 20 UG, QD
     Route: 058
     Dates: start: 20110509, end: 20110510
  12. ALLOPURINOL [Concomitant]
     Dosage: 100 MG, QD
     Route: 048
  13. PREDNISOLONE [Concomitant]
     Indication: RHEUMATOID ARTHRITIS
     Dosage: 1.5 MG, QD
     Route: 048
     Dates: start: 19950101
  14. SELBEX [Concomitant]
     Dosage: 0.5 G, BID
     Route: 048
     Dates: start: 19950101

REACTIONS (5)
  - MALAISE [None]
  - PALPITATIONS [None]
  - HEADACHE [None]
  - BLOOD PRESSURE DECREASED [None]
  - HOT FLUSH [None]
